FAERS Safety Report 5365327-8 (Version None)
Quarter: 2007Q2

REPORT INFORMATION
  Report Type: 
  Country: None (occurrence: None)
  Receive Date: 20070530
  Receipt Date: 20070223
  Transmission Date: 20071010
  Serious: No
  Sender: FDA-Public Use
  Company Number: 2006PV022591

PATIENT
  Age: 74 Year
  Sex: Female
  Weight: 92.0802 kg

DRUGS (7)
  1. BYETTA [Suspect]
     Indication: DIABETES MELLITUS NON-INSULIN-DEPENDENT
     Dosage: 5 MCG;BID;SC ; 5 MCG;BID;SC
     Route: 058
     Dates: start: 20060808
  2. BYETTA [Suspect]
     Indication: DIABETES MELLITUS NON-INSULIN-DEPENDENT
     Dosage: 5 MCG;BID;SC ; 5 MCG;BID;SC
     Route: 058
     Dates: start: 20061001
  3. BYETTA [Suspect]
  4. ACTOS [Concomitant]
  5. AMARYL [Concomitant]
  6. GLUCOPHAGE [Concomitant]
  7. .. [Concomitant]

REACTIONS (7)
  - BLOOD GLUCOSE DECREASED [None]
  - DIZZINESS [None]
  - DYSPEPSIA [None]
  - ERUCTATION [None]
  - FLATULENCE [None]
  - NAUSEA [None]
  - WEIGHT DECREASED [None]
